FAERS Safety Report 22157073 (Version 5)
Quarter: 2023Q2

REPORT INFORMATION
  Report Type: Spontaneous
  Country: PL (occurrence: PL)
  Receive Date: 20230330
  Receipt Date: 20230428
  Transmission Date: 20230721
  Serious: Yes (Hospitalization)
  Sender: FDA-Public Use
  Company Number: PL-VIIV HEALTHCARE LIMITED-PL2023EME035724

PATIENT
  Age: 24 Year
  Sex: Male

DRUGS (2)
  1. RILPIVIRINE [Suspect]
     Active Substance: RILPIVIRINE
     Indication: Antiretroviral therapy
     Route: 030
     Dates: start: 20230227
  2. VOCABRIA [Suspect]
     Active Substance: CABOTEGRAVIR SODIUM
     Indication: Antiretroviral therapy
     Dosage: 600 MG, Z MONTHLY (1 X)
     Route: 030
     Dates: start: 20230227

REACTIONS (8)
  - Injection site pain [Recovering/Resolving]
  - Condition aggravated [Recovering/Resolving]
  - Hypoaesthesia [Unknown]
  - Pain [Unknown]
  - Muscular weakness [Recovered/Resolved]
  - Injection site inflammation [Recovering/Resolving]
  - Injection site oedema [Unknown]
  - Paraesthesia [Unknown]

NARRATIVE: CASE EVENT DATE: 20230227
